FAERS Safety Report 12612479 (Version 1)
Quarter: 2016Q3

REPORT INFORMATION
  Report Type: Spontaneous
  Country: US (occurrence: US)
  Receive Date: 20160801
  Receipt Date: 20160801
  Transmission Date: 20161109
  Serious: No
  Sender: FDA-Public Use
  Company Number: US-PRINSTON PHARMACEUTICAL INC.-2015RIS00120

PATIENT
  Sex: Male

DRUGS (4)
  1. ATORVASTATIN (MYLAN) [Suspect]
     Active Substance: ATORVASTATIN
     Dosage: 20 MG, 1X/DAY
     Dates: start: 2015, end: 2015
  2. METOPROLOL (MYLAN) [Suspect]
     Active Substance: METOPROLOL
     Dosage: 0.5 TABLETS, 2X/DAY
     Dates: start: 2015
  3. ATORVASTATIN (MYLAN) [Suspect]
     Active Substance: ATORVASTATIN
     Dosage: 5 UNK, UNK
     Dates: start: 2015
  4. LOSARTAN POTASSIUM. [Suspect]
     Active Substance: LOSARTAN POTASSIUM
     Dosage: 25 MG, 1X/DAY
     Route: 048
     Dates: start: 201503

REACTIONS (4)
  - Headache [Recovered/Resolved]
  - Cough [Recovered/Resolved]
  - Neck pain [Recovered/Resolved]
  - Hypotension [Unknown]

NARRATIVE: CASE EVENT DATE: 2015
